FAERS Safety Report 4375819-6 (Version None)
Quarter: 2004Q2

REPORT INFORMATION
  Report Type: 
  Country: None (occurrence: None)
  Receive Date: 20040607
  Receipt Date: 20040524
  Transmission Date: 20050107
  Serious: Yes (Hospitalization)
  Sender: FDA-Public Use
  Company Number: 2004213925JP

PATIENT
  Age: 41 Year
  Sex: Male
  Weight: 77 kg

DRUGS (9)
  1. DOSTINEX [Suspect]
     Indication: PROLACTINOMA
     Dosage: SEE IMAGE
     Route: 048
     Dates: start: 20030926, end: 20031023
  2. DOSTINEX [Suspect]
     Indication: PROLACTINOMA
     Dosage: SEE IMAGE
     Route: 048
     Dates: start: 20031024, end: 20040302
  3. DOSTINEX [Suspect]
     Indication: PROLACTINOMA
     Dosage: SEE IMAGE
     Route: 048
     Dates: start: 20040303, end: 20040426
  4. DOSTINEX [Suspect]
     Indication: PROLACTINOMA
     Dosage: SEE IMAGE
     Route: 048
     Dates: start: 20040427, end: 20040501
  5. AKINETON [Concomitant]
  6. HALOPERIDOL [Concomitant]
  7. HALCION [Concomitant]
  8. LENDORM [Concomitant]
  9. CIRCANETTEN (BIOFLAVONOIDS, SENNA, POTASSIUM BITARTRATE) [Concomitant]

REACTIONS (7)
  - CONCUSSION [None]
  - CONFUSIONAL STATE [None]
  - DYSKINESIA [None]
  - EXCITABILITY [None]
  - FALL [None]
  - MUSCULOSKELETAL STIFFNESS [None]
  - TREATMENT NONCOMPLIANCE [None]
